FAERS Safety Report 12124732 (Version 1)
Quarter: 2016Q1

REPORT INFORMATION
  Report Type: Spontaneous
  Country: US (occurrence: None)
  Receive Date: 20160226
  Receipt Date: 20160226
  Transmission Date: 20160526
  Serious: Yes (Hospitalization)
  Sender: FDA-Public Use
  Company Number: None

PATIENT
  Age: 35 Year
  Sex: Male
  Weight: 57.61 kg

DRUGS (8)
  1. VITAMIN D [Concomitant]
     Active Substance: CHOLECALCIFEROL
  2. ZENTAC [Concomitant]
  3. CYANOCOBALAMIN. [Concomitant]
     Active Substance: CYANOCOBALAMIN
  4. CALCIUM ACETATE. [Concomitant]
     Active Substance: CALCIUM ACETATE
  5. NEPHROCAPS [Concomitant]
     Active Substance: ASCORBIC ACID\BIOTIN\CYANOCOBALAMIN\FOLIC ACID\NIACIN\PANTOTHENIC ACID\PYRIDOXINE\RIBOFLAVIN\THIAMINE
  6. VIEKIRA PAK [Suspect]
     Active Substance: DASABUVIR\OMBITASVIR\PARITAPREVIR\RITONAVIR
     Indication: HEPATITIS C
     Dosage: 12.5/75/50/250 MG BID ORAL
     Route: 048
     Dates: start: 20150609, end: 20151204
  7. SODIUM [Concomitant]
     Active Substance: SODIUM
  8. BICARBONATE [Concomitant]
     Active Substance: BICARBONATE ION

REACTIONS (4)
  - Localised intraabdominal fluid collection [None]
  - Diarrhoea [None]
  - Bacteraemia [None]
  - Clostridium difficile infection [None]

NARRATIVE: CASE EVENT DATE: 20151017
